FAERS Safety Report 18182838 (Version 7)
Quarter: 2022Q3

REPORT INFORMATION
  Report Type: Report from Study
  Country: US (occurrence: US)
  Receive Date: 20200821
  Receipt Date: 20220823
  Transmission Date: 20221027
  Serious: Yes (Other)
  Sender: FDA-Public Use
  Company Number: US-SHIRE-US202027181

PATIENT
  Age: 63 Year
  Sex: Female
  Weight: 113 kg

DRUGS (51)
  1. HUMAN IMMUNOGLOBULIN G [Suspect]
     Active Substance: HUMAN IMMUNOGLOBULIN G
     Indication: Immunodeficiency common variable
     Dosage: 24 GRAM, Q2WEEKS
     Route: 058
     Dates: start: 20200524
  2. HUMAN IMMUNOGLOBULIN G [Suspect]
     Active Substance: HUMAN IMMUNOGLOBULIN G
     Dosage: 24 GRAM, Q2WEEKS
     Route: 058
     Dates: start: 20200529
  3. ZINC GLUCONATE [Concomitant]
     Active Substance: ZINC GLUCONATE
     Route: 065
  4. TAURIN [Concomitant]
     Route: 065
  5. VITAMIN D2 [Concomitant]
     Active Substance: ERGOCALCIFEROL
     Route: 065
  6. OPTI SAFE [Concomitant]
     Dosage: UNK
  7. ACETAMINOPHEN [Concomitant]
     Active Substance: ACETAMINOPHEN
     Route: 065
  8. DIPHENHYDRAMINE [Concomitant]
     Active Substance: DIPHENHYDRAMINE
     Route: 065
  9. EPINEPHRINE [Concomitant]
     Active Substance: EPINEPHRINE
     Route: 065
  10. LIDOCAINE [Concomitant]
     Active Substance: LIDOCAINE
     Route: 065
  11. UROCIT-K [Concomitant]
     Active Substance: POTASSIUM CITRATE
     Route: 065
  12. OXITRIPTAN [Concomitant]
     Active Substance: OXITRIPTAN
     Route: 065
  13. BILBERRY [VACCINIUM MYRTILLUS] [Concomitant]
     Route: 065
  14. UNSPECIFIED INGREDIENT [Concomitant]
     Active Substance: UNSPECIFIED INGREDIENT
     Route: 065
  15. PRASTERONE [Concomitant]
     Active Substance: PRASTERONE
     Route: 065
  16. MAGNESIUM [Concomitant]
     Active Substance: MAGNESIUM
     Route: 065
  17. WELCHOL [Concomitant]
     Active Substance: COLESEVELAM HYDROCHLORIDE
     Route: 065
  18. PROAIR RESPICLICK [Concomitant]
     Active Substance: ALBUTEROL SULFATE
     Route: 065
  19. SINGULAIR [Concomitant]
     Active Substance: MONTELUKAST SODIUM
     Route: 065
  20. DULERA [Concomitant]
     Active Substance: FORMOTEROL FUMARATE DIHYDRATE\MOMETASONE FUROATE
     Route: 065
  21. LEVOTHYROXINE [Concomitant]
     Active Substance: LEVOTHYROXINE
     Route: 065
  22. LOSARTAN [Concomitant]
     Active Substance: LOSARTAN
     Route: 065
  23. VITAMIN B COMPLEX [Concomitant]
     Active Substance: CYANOCOBALAMIN\DEXPANTHENOL\NIACINAMIDE\PYRIDOXINE HYDROCHLORIDE\RIBOFLAVIN 5^-PHOSPHATE SODIUM\THIA
     Route: 065
  24. Liver + kidney cleanser [Concomitant]
  25. LASIX [Concomitant]
     Active Substance: FUROSEMIDE
     Route: 065
  26. VITAMIN B12 [Concomitant]
     Active Substance: CYANOCOBALAMIN
     Route: 065
  27. VITAMINS NOS [Concomitant]
     Active Substance: VITAMINS
     Route: 065
  28. MELATONIN [Concomitant]
     Active Substance: MELATONIN
     Route: 065
  29. CYTOMEL [Concomitant]
     Active Substance: LIOTHYRONINE SODIUM
     Route: 065
  30. SPIRONOLACTONE [Concomitant]
     Active Substance: SPIRONOLACTONE
     Route: 065
  31. BIOFLAVONOIDS [Concomitant]
     Active Substance: BIOFLAVONOIDS
     Route: 065
  32. CITRUS [Concomitant]
     Active Substance: ALCOHOL
     Route: 065
  33. VITAMIN D2 [Concomitant]
     Active Substance: ERGOCALCIFEROL
     Route: 065
  34. XOPENEX [Concomitant]
     Active Substance: LEVALBUTEROL HYDROCHLORIDE
     Route: 065
  35. IMMUNE SUPPORT [Concomitant]
     Route: 065
  36. METRONIDAZOLE BENZOATE [Concomitant]
     Active Substance: METRONIDAZOLE BENZOATE
     Route: 065
  37. CIPRO [Concomitant]
     Active Substance: CIPROFLOXACIN HYDROCHLORIDE
     Route: 065
  38. TYROSINE [Concomitant]
     Active Substance: TYROSINE
     Route: 065
  39. LEVOFLOXACIN [Concomitant]
     Active Substance: LEVOFLOXACIN
     Route: 065
  40. PROBIOTICS NOS [Concomitant]
     Active Substance: PROBIOTICS NOS
     Route: 065
  41. ALLOPURINOL [Concomitant]
     Active Substance: ALLOPURINOL
     Route: 065
  42. LIVER CLEAR [Concomitant]
     Dosage: UNK
  43. LEVALBUTEROL [Concomitant]
     Active Substance: LEVALBUTEROL
  44. BUPROPION [Concomitant]
     Active Substance: BUPROPION
  45. CRESTOR [Concomitant]
     Active Substance: ROSUVASTATIN CALCIUM
  46. COQ [Concomitant]
  47. IRBESARTAN [Concomitant]
     Active Substance: IRBESARTAN
  48. OCUVITE [Concomitant]
     Active Substance: VITAMINS
  49. SPIRONOLACTONE [Concomitant]
     Active Substance: SPIRONOLACTONE
  50. UNSPECIFIED INGREDIENT [Concomitant]
     Active Substance: UNSPECIFIED INGREDIENT
  51. LEVOTHYROXINE SODIUM [Concomitant]
     Active Substance: LEVOTHYROXINE SODIUM

REACTIONS (6)
  - Systemic mycosis [Unknown]
  - Sinusitis [Unknown]
  - Therapy interrupted [Unknown]
  - Weight decreased [Unknown]
  - Product dose omission issue [Unknown]
  - Insurance issue [Unknown]

NARRATIVE: CASE EVENT DATE: 20210401
